FAERS Safety Report 12962925 (Version 1)
Quarter: 2016Q4

REPORT INFORMATION
  Report Type: Other
  Country: RO (occurrence: RO)
  Receive Date: 20161122
  Receipt Date: 20161122
  Transmission Date: 20170207
  Serious: Yes (Other)
  Sender: FDA-Public Use
  Company Number: RO-HETERO LABS LTD-1059902

PATIENT
  Sex: Male

DRUGS (2)
  1. LAMIVUDINE AND ZIDOVUDINE [Suspect]
     Active Substance: LAMIVUDINE\ZIDOVUDINE
     Route: 065
  2. EFAVIRENZ [Suspect]
     Active Substance: EFAVIRENZ
     Indication: HIV INFECTION
     Route: 065

REACTIONS (5)
  - Lipodystrophy acquired [Recovering/Resolving]
  - Blood triglycerides increased [Recovering/Resolving]
  - Sleep disorder [Recovering/Resolving]
  - Bladder irritation [Recovering/Resolving]
  - Blood cholesterol increased [Recovering/Resolving]
